FAERS Safety Report 7512485-2 (Version None)
Quarter: 2011Q2

REPORT INFORMATION
  Report Type: 
  Country: None (occurrence: None)
  Receive Date: 20110520
  Receipt Date: 20110517
  Transmission Date: 20111010
  Serious: Yes (Hospitalization)
  Sender: FDA-Public Use
  Company Number: 2009002931

PATIENT
  Age: 73 Year
  Sex: Male

DRUGS (7)
  1. ALBUTEROL SULFATE [Concomitant]
  2. ACETAMINOPHEN [Concomitant]
  3. BIMATOPROST [Concomitant]
  4. ERLOTINIB (ERLOTINIB) (TABLET) (ERLOTINIB) [Suspect]
     Indication: NON-SMALL CELL LUNG CANCER
     Dosage: 150 MG, QD, ORAL
     Route: 048
     Dates: start: 20090720, end: 20090901
  5. LANSOPRAZOLE [Concomitant]
  6. ORAMORPH SR [Concomitant]
  7. CP-751,871 [Suspect]
     Indication: NON-SMALL CELL LUNG CANCER
     Dosage: 1764 MG, Q3W, INTRAVENOUS
     Route: 042
     Dates: start: 20090720

REACTIONS (14)
  - ASTHENIA [None]
  - CONFUSIONAL STATE [None]
  - DECREASED APPETITE [None]
  - DIARRHOEA [None]
  - FATIGUE [None]
  - BLOOD POTASSIUM DECREASED [None]
  - BLOOD MAGNESIUM DECREASED [None]
  - DEHYDRATION [None]
  - BLOOD ALBUMIN DECREASED [None]
  - BLOOD PHOSPHORUS DECREASED [None]
  - BLOOD LACTATE DEHYDROGENASE DECREASED [None]
  - HYPERCALCAEMIA [None]
  - BLOOD GLUCOSE INCREASED [None]
  - GAMMA-GLUTAMYLTRANSFERASE INCREASED [None]
